FAERS Safety Report 19497669 (Version 1)
Quarter: 2021Q3

REPORT INFORMATION
  Report Type: Spontaneous
  Country: US (occurrence: US)
  Receive Date: 20210706
  Receipt Date: 20210706
  Transmission Date: 20211014
  Serious: Yes (Hospitalization, Other)
  Sender: FDA-Public Use
  Company Number: US-BIOVITRUM-2021US1391

PATIENT
  Age: 4 Year
  Sex: Female

DRUGS (2)
  1. KINERET [Suspect]
     Active Substance: ANAKINRA
     Route: 058
     Dates: start: 20210113
  2. KINERET [Suspect]
     Active Substance: ANAKINRA
     Indication: COLITIS
     Route: 058
     Dates: start: 20201223, end: 20210630

REACTIONS (6)
  - Inflammatory bowel disease [Unknown]
  - Haemoglobin decreased [Unknown]
  - Incorrect dose administered [Unknown]
  - Off label use [Recovered/Resolved]
  - Wrong technique in product usage process [Unknown]
  - Product use complaint [Unknown]

NARRATIVE: CASE EVENT DATE: 20201223
